FAERS Safety Report 5947935-6 (Version None)
Quarter: 2008Q4

REPORT INFORMATION
  Report Type: 
  Country: None (occurrence: None)
  Receive Date: 20081111
  Receipt Date: 20080908
  Transmission Date: 20090506
  Serious: No
  Sender: FDA-Public Use
  Company Number: A0747997A

PATIENT

DRUGS (1)
  1. TREXIMET [Suspect]
     Indication: HEADACHE
     Route: 048
     Dates: start: 20080908

REACTIONS (3)
  - MUSCULOSKELETAL PAIN [None]
  - NAUSEA [None]
  - NECK PAIN [None]
